FAERS Safety Report 7584924-2 (Version None)
Quarter: 2011Q2

REPORT INFORMATION
  Report Type: 
  Country: None (occurrence: None)
  Receive Date: 20110630
  Receipt Date: 20090331
  Transmission Date: 20111010
  Serious: Yes (Disabling, Other)
  Sender: FDA-Public Use
  Company Number: US-BAYER-200912073NA

PATIENT
  Age: 34 Year
  Sex: Female
  Weight: 101.13 kg

DRUGS (15)
  1. XANAX [Concomitant]
     Dosage: UNK
     Dates: start: 20060101
  2. COUMADIN [Concomitant]
     Dosage: 5 MG, QD
     Route: 048
     Dates: start: 20040101
  3. RENAGEL [Concomitant]
     Dosage: UNK
     Dates: start: 20040101
  4. ATENOLOL [Concomitant]
     Dosage: UNK
     Dates: start: 20060101
  5. COUMADIN [Concomitant]
     Dosage: 5 MG, QD
     Route: 048
     Dates: start: 20060101
  6. EPOGEN [Concomitant]
     Dosage: 20000 U, BIW
     Dates: start: 20040101
  7. LEVOTHYROXINE SODIUM [Concomitant]
     Dosage: 0.025 MG, QD
     Dates: start: 20040101
  8. PROZAC [Concomitant]
     Dosage: 10 MG, QD
     Dates: start: 20060101
  9. PRINIVIL [Concomitant]
     Indication: BLOOD PRESSURE INCREASED
     Dosage: 10 MG, QD AS NEEDED FOR BLOOD PRESSURE } 130/90
     Dates: start: 20060101
  10. GADOLINIUM IN UNSPECIFIED DRUG [Suspect]
     Indication: NUCLEAR MAGNETIC RESONANCE IMAGING
     Dosage: UNK
     Dates: start: 20040119, end: 20040119
  11. OMNISCAN [Suspect]
     Indication: NUCLEAR MAGNETIC RESONANCE IMAGING
  12. OPTIMARK [Suspect]
     Indication: NUCLEAR MAGNETIC RESONANCE IMAGING
  13. RENAGEL [Concomitant]
     Dosage: UNK
     Dates: start: 20060101
  14. MAGNEVIST [Suspect]
     Indication: NUCLEAR MAGNETIC RESONANCE IMAGING
     Dosage: UNK UNK, ONCE
     Dates: start: 20060407, end: 20060407
  15. LANTHANUM CARBONATE [Concomitant]
     Dosage: 400 MG, TID
     Dates: start: 20060101

REACTIONS (8)
  - ANXIETY [None]
  - GENERAL PHYSICAL HEALTH DETERIORATION [None]
  - PAIN [None]
  - SKIN FIBROSIS [None]
  - FIBROSIS [None]
  - EMOTIONAL DISTRESS [None]
  - NEPHROGENIC SYSTEMIC FIBROSIS [None]
  - SCAR [None]
